FAERS Safety Report 10461318 (Version 1)
Quarter: 2014Q3

REPORT INFORMATION
  Report Type: Spontaneous
  Country: US (occurrence: None)
  Receive Date: 20140917
  Receipt Date: 20140917
  Transmission Date: 20150326
  Serious: No
  Sender: FDA-Public Use
  Company Number: None

PATIENT
  Age: 66 Year
  Sex: Female

DRUGS (8)
  1. LEVOTHYROXINE [Concomitant]
     Active Substance: LEVOTHYROXINE
  2. ALIGN [Concomitant]
     Active Substance: BIFIDOBACTERIUM LONGUM SUBSP. INFANTIS
  3. D3 TUMS [Concomitant]
  4. MIRTAZAPINE. [Concomitant]
     Active Substance: MIRTAZAPINE
  5. IC QUETIAPINE FUMARATE 25 MG TAB TEVA USA [Suspect]
     Active Substance: QUETIAPINE FUMARATE
     Indication: DEPRESSION
     Route: 048
     Dates: start: 20140618, end: 20140906
  6. LEVOTHYROXINE [Concomitant]
     Active Substance: LEVOTHYROXINE
  7. IC QUETIAPINE FUMARATE 25 MG TAB TEVA USA [Suspect]
     Active Substance: QUETIAPINE FUMARATE
     Indication: ANXIETY DISORDER
     Route: 048
     Dates: start: 20140618, end: 20140906
  8. QUETIAPINE [Concomitant]
     Active Substance: QUETIAPINE

REACTIONS (9)
  - Screaming [None]
  - Terminal insomnia [None]
  - Disturbance in attention [None]
  - Feeling jittery [None]
  - Pain [None]
  - Drug ineffective [None]
  - Blood glucose decreased [None]
  - Anxiety [None]
  - Thinking abnormal [None]

NARRATIVE: CASE EVENT DATE: 20140618
